FAERS Safety Report 6761492-6 (Version None)
Quarter: 2010Q2

REPORT INFORMATION
  Report Type: 
  Country: None (occurrence: None)
  Receive Date: 20100607
  Receipt Date: 20100525
  Transmission Date: 20101027
  Serious: Yes (Hospitalization)
  Sender: FDA-Public Use
  Company Number: 7006073

PATIENT
  Age: 13 Year
  Sex: Male

DRUGS (2)
  1. REBIF [Suspect]
     Indication: OFF LABEL USE
     Dosage: 22 MCG, 3 IN 1 WK, SUBCUTANEOUS
     Route: 058
     Dates: start: 20090814, end: 20100101
  2. VITAMIN D [Concomitant]

REACTIONS (5)
  - EPISTAXIS [None]
  - HEPATIC ENZYME ABNORMAL [None]
  - MULTIPLE SCLEROSIS RELAPSE [None]
  - OFF LABEL USE [None]
  - PLASMA VISCOSITY DECREASED [None]
